FAERS Safety Report 4488181-5 (Version None)
Quarter: 2004Q4

REPORT INFORMATION
  Report Type: 
  Country: None (occurrence: None)
  Receive Date: 20041028
  Receipt Date: 20041018
  Transmission Date: 20050328
  Serious: Yes (Other)
  Sender: FDA-Public Use
  Company Number: PHFR2004GB03904

PATIENT
  Age: 84 Year
  Sex: Male

DRUGS (7)
  1. DICLOFENAC [Suspect]
     Indication: PAIN
     Dosage: 50 MG, TID
     Route: 048
     Dates: end: 20040929
  2. CITALOPRAM [Suspect]
     Indication: DEPRESSION
     Dosage: 20MG/DAY
     Route: 048
  3. ASPIRIN [Suspect]
     Dosage: 75 MG, QD
     Route: 048
     Dates: end: 20040929
  4. PEPPERMINT OIL [Concomitant]
     Indication: ABDOMINAL DISTENSION
     Dosage: 1 TAB
     Route: 048
  5. NIFEDIPINE [Concomitant]
     Indication: HYPERTENSION
     Dosage: 10 MG, BID
     Route: 048
  6. CO-TENIDONE [Concomitant]
     Indication: HYPERTENSION
     Dosage: 100/25MG/DAY
     Route: 048
  7. DIGOXIN [Concomitant]
     Indication: ATRIAL FIBRILLATION
     Dosage: 62.5UG/DAY
     Route: 048

REACTIONS (4)
  - DRUG INTERACTION [None]
  - DUODENAL ULCER HAEMORRHAGE [None]
  - GASTRIC ULCER [None]
  - GASTROINTESTINAL HAEMORRHAGE [None]
